FAERS Safety Report 9320331 (Version 1)
Quarter: 2013Q2

REPORT INFORMATION
  Report Type: Spontaneous
  Country: US (occurrence: US)
  Receive Date: 20130530
  Receipt Date: 20130530
  Transmission Date: 20140414
  Serious: Yes (Hospitalization)
  Sender: FDA-Public Use
  Company Number: US-B.I. PHARMACEUTICALS,INC./RIDGEFIELD-2013-BI-14130BP

PATIENT
  Age: 86 Year
  Sex: Female

DRUGS (5)
  1. PRADAXA [Suspect]
     Indication: CEREBROVASCULAR ACCIDENT PROPHYLAXIS
     Route: 048
     Dates: start: 201207, end: 201208
  2. PRADAXA [Suspect]
     Indication: ATRIAL FIBRILLATION
  3. WARFARIN [Concomitant]
     Route: 048
  4. ASPIRIN [Concomitant]
     Route: 048
  5. PLAVIX [Concomitant]
     Route: 048

REACTIONS (1)
  - Gastrointestinal haemorrhage [Recovered/Resolved]
